FAERS Safety Report 11696600 (Version 1)
Quarter: 2015Q4

REPORT INFORMATION
  Report Type: Spontaneous
  Country: US (occurrence: US)
  Receive Date: 20151104
  Receipt Date: 20151104
  Transmission Date: 20160304
  Serious: Yes (Hospitalization)
  Sender: FDA-Public Use
  Company Number: US-ASTRAZENECA-2015SF04997

PATIENT
  Sex: Female
  Weight: 113.4 kg

DRUGS (1)
  1. SYMBICORT [Suspect]
     Active Substance: BUDESONIDE\FORMOTEROL FUMARATE DIHYDRATE
     Indication: LUNG DISORDER
     Dosage: 160/4.2  2 PUFFS IN THE MORNING AND TWO PUFFS AT NIGHT
     Route: 055

REACTIONS (4)
  - Pleurisy [Unknown]
  - Oral pain [Unknown]
  - Depression [Not Recovered/Not Resolved]
  - Dyspnoea [Unknown]
